FAERS Safety Report 7243669-9 (Version None)
Quarter: 2011Q1

REPORT INFORMATION
  Report Type: 
  Country: None (occurrence: None)
  Receive Date: 20110125
  Receipt Date: 20110121
  Transmission Date: 20110831
  Serious: Yes (Death, Other)
  Sender: FDA-Public Use
  Company Number: PHHY2010JP84661

PATIENT
  Age: 78 Year
  Sex: Male
  Weight: 38 kg

DRUGS (8)
  1. PREDNISOLONE [Concomitant]
     Indication: GLOMERULONEPHRITIS
     Dosage: 10 MG, UNK
     Route: 048
     Dates: start: 20101217
  2. OMEPRAL [Concomitant]
     Dosage: 10 MG, UNK
  3. NORVASC [Concomitant]
     Dosage: 10 MG, UNK
     Route: 048
  4. NEORAL [Suspect]
     Indication: GLOMERULONEPHRITIS
     Dosage: 150 MG, QD
     Route: 048
     Dates: end: 20101112
  5. CRESTOR [Concomitant]
     Dosage: 2.5 MG, UNK
     Route: 048
  6. NEORAL [Suspect]
     Dosage: 100 MG, QD
     Route: 048
     Dates: start: 20101113, end: 20101217
  7. MICARDIS [Concomitant]
     Dosage: 80 MG, UNK
  8. DIART [Concomitant]
     Dosage: 60 MG, UNK

REACTIONS (7)
  - DISEASE PROGRESSION [None]
  - IMMUNOSUPPRESSANT DRUG LEVEL INCREASED [None]
  - BLOOD UREA INCREASED [None]
  - ALANINE AMINOTRANSFERASE INCREASED [None]
  - BLOOD CREATININE INCREASED [None]
  - GENERAL PHYSICAL CONDITION [None]
  - DECREASED APPETITE [None]
